FAERS Safety Report 4310875-2 (Version None)
Quarter: 2004Q1

REPORT INFORMATION
  Report Type: 
  Country: None (occurrence: None)
  Receive Date: 20040302
  Receipt Date: 20040218
  Transmission Date: 20041129
  Serious: Yes (Death)
  Sender: FDA-Public Use
  Company Number: NL-JNJFOC-20040204307

PATIENT
  Age: 84 Year
  Sex: Male

DRUGS (6)
  1. RISPERDAL [Suspect]
     Indication: DELIRIUM
     Dosage: SEE IMAGE
     Dates: start: 20040130, end: 20040131
  2. RISPERDAL [Suspect]
     Indication: DELIRIUM
     Dosage: SEE IMAGE
     Dates: start: 19920101
  3. CEDOCARD RETARD (BEZAFIBRATE) TABLET [Concomitant]
  4. SELOKEEN (METOPROLOL TARTRATE) TABLETS [Concomitant]
  5. THYRAX (LEVOTHYROXINE) TABLETS [Concomitant]
  6. REMERON [Concomitant]

REACTIONS (1)
  - CARDIAC ARREST [None]
